FAERS Safety Report 5395461-8 (Version None)
Quarter: 2007Q3

REPORT INFORMATION
  Report Type: 
  Country: None (occurrence: None)
  Receive Date: 20070724
  Receipt Date: 20070719
  Transmission Date: 20080115
  Serious: Yes (Hospitalization)
  Sender: FDA-Public Use
  Company Number: B0477234A

PATIENT
  Age: 78 Year
  Sex: Female
  Weight: 51 kg

DRUGS (12)
  1. VALTREX [Suspect]
     Indication: HERPES ZOSTER
     Dosage: 1000MG THREE TIMES PER DAY
     Route: 048
     Dates: start: 20070607, end: 20070614
  2. KETAS [Concomitant]
     Indication: CEREBRAL INFARCTION
     Route: 048
  3. GLYCYRON [Concomitant]
     Indication: HEPATITIS C
     Route: 048
  4. LIPITOR [Concomitant]
     Route: 048
  5. ADALAT [Concomitant]
     Indication: HYPERTENSION
     Route: 048
  6. BUFFERIN [Concomitant]
     Indication: CEREBRAL INFARCTION
     Dosage: 81MG PER DAY
     Route: 048
  7. FASTIC [Concomitant]
     Indication: DIABETES MELLITUS
     Route: 048
  8. VOLTAREN [Concomitant]
     Indication: HERPES ZOSTER
     Route: 054
     Dates: start: 20070607, end: 20070614
  9. METHYCOBAL [Concomitant]
     Indication: HERPES ZOSTER
     Dosage: 1500MCG PER DAY
     Route: 048
     Dates: start: 20070609, end: 20070621
  10. GAISAL [Concomitant]
     Indication: GASTRITIS
     Route: 048
  11. MAGLAX [Concomitant]
     Indication: CONSTIPATION
     Route: 048
  12. LACTATED RINGER'S [Concomitant]
     Indication: DEHYDRATION
     Dosage: 1000ML PER DAY
     Route: 042
     Dates: start: 20070612, end: 20070615

REACTIONS (3)
  - ANOREXIA [None]
  - MALAISE [None]
  - PYREXIA [None]
